FAERS Safety Report 5431637-9 (Version None)
Quarter: 2007Q3

REPORT INFORMATION
  Report Type: 
  Country: None (occurrence: None)
  Receive Date: 20070828
  Receipt Date: 20070815
  Transmission Date: 20080115
  Serious: Yes (Hospitalization)
  Sender: FDA-Public Use
  Company Number: 236851K07USA

PATIENT
  Age: 45 Year
  Sex: Female
  Weight: 74.3899 kg

DRUGS (4)
  1. REBIF [Suspect]
     Indication: MULTIPLE SCLEROSIS
     Dosage: 44 MCG, 3 IN 1 WEEKS, SUBCUTANEOUS
     Route: 058
     Dates: start: 20030430
  2. LISINOPRIL [Concomitant]
  3. CYMBALTA [Concomitant]
  4. ZANAFLEX [Concomitant]

REACTIONS (12)
  - BLOOD CHOLESTEROL INCREASED [None]
  - CONDITION AGGRAVATED [None]
  - CORONARY ARTERY OCCLUSION [None]
  - GASTROOESOPHAGEAL REFLUX DISEASE [None]
  - INJECTION SITE BRUISING [None]
  - INJECTION SITE PRURITUS [None]
  - INJECTION SITE RASH [None]
  - INJECTION SITE URTICARIA [None]
  - MULTIPLE SCLEROSIS [None]
  - MUSCULOSKELETAL PAIN [None]
  - MUSCULOSKELETAL STIFFNESS [None]
  - MYOCARDIAL INFARCTION [None]
